FAERS Safety Report 13156432 (Version 3)
Quarter: 2017Q4

REPORT INFORMATION
  Report Type: Spontaneous
  Country: BR (occurrence: BR)
  Receive Date: 20170126
  Receipt Date: 20171206
  Transmission Date: 20180320
  Serious: Yes (Hospitalization)
  Sender: FDA-Public Use
  Company Number: ALCN2017BR000804

PATIENT
  Sex: Female
  Weight: 72 kg

DRUGS (6)
  1. VITALUX PLUS [Suspect]
     Active Substance: VITAMINS
     Indication: EYE DISORDER
     Dosage: 1 DF, QHS (AT NIGHT)
     Route: 048
     Dates: end: 2016
  2. ELIQUIS [Concomitant]
     Active Substance: APIXABAN
     Indication: ANTICOAGULANT THERAPY
     Dosage: 5 MG, Q12H
     Route: 048
  3. DONILA [Concomitant]
     Active Substance: DONEPEZIL HYDROCHLORIDE
     Indication: MEMORY IMPAIRMENT
     Dosage: 5 MG, QD
     Route: 048
  4. ANCORON [Concomitant]
     Active Substance: AMIODARONE HYDROCHLORIDE
     Indication: CARDIAC DISORDER
     Dosage: 200 MG, QD
     Route: 048
     Dates: start: 2017
  5. VELIJA [Concomitant]
     Active Substance: DULOXETINE HYDROCHLORIDE
     Indication: PAIN
     Dosage: 1 DF, QD
     Route: 048
  6. VELIJA [Concomitant]
     Active Substance: DULOXETINE HYDROCHLORIDE
     Indication: DEPRESSION

REACTIONS (4)
  - Malaise [Recovered/Resolved]
  - Nausea [Unknown]
  - Vomiting [Recovered/Resolved]
  - Retching [Recovered/Resolved]
